FAERS Safety Report 25428022 (Version 1)
Quarter: 2025Q2

REPORT INFORMATION
  Report Type: Spontaneous
  Country: US (occurrence: None)
  Receive Date: 20250611
  Receipt Date: 20250611
  Transmission Date: 20250717
  Serious: Yes (Death)
  Sender: FDA-CTU
  Company Number: None

PATIENT
  Age: 40 Year
  Sex: Female
  Weight: 57.6 kg

DRUGS (12)
  1. TRIKAFTA [Suspect]
     Active Substance: ELEXACAFTOR\IVACAFTOR\TEZACAFTOR
     Indication: Cystic fibrosis
     Route: 048
     Dates: start: 20231213, end: 20250609
  2. EVEROLIMUS [Suspect]
     Active Substance: EVEROLIMUS
     Indication: Lung transplant
     Dosage: FREQUENCY : DAILY;?
     Route: 048
     Dates: start: 20230404, end: 20250609
  3. ZENPEP [Concomitant]
     Active Substance: PANCRELIPASE AMYLASE\PANCRELIPASE LIPASE\PANCRELIPASE PROTEASE
  4. ELIQUIS [Concomitant]
     Active Substance: APIXABAN
  5. MONTELUKAST [Concomitant]
     Active Substance: MONTELUKAST
  6. ESCITALOPRAM [Concomitant]
     Active Substance: ESCITALOPRAM OXALATE
  7. PREDNISONE [Suspect]
     Active Substance: PREDNISONE
  8. URSODIOL [Concomitant]
     Active Substance: URSODIOL
  9. IBANDRONATE SODIUM [Concomitant]
     Active Substance: IBANDRONATE SODIUM
  10. FAMOTIDINE [Concomitant]
     Active Substance: FAMOTIDINE
  11. LANSOPRAZOLE [Concomitant]
     Active Substance: LANSOPRAZOLE
  12. TRACONAZOLE [Concomitant]

REACTIONS (1)
  - Respiratory failure [None]

NARRATIVE: CASE EVENT DATE: 20250609
